FAERS Safety Report 6699332-6 (Version None)
Quarter: 2010Q2

REPORT INFORMATION
  Report Type: 
  Country: None (occurrence: None)
  Receive Date: 20100427
  Receipt Date: 20100414
  Transmission Date: 20101027
  Serious: Yes (Other)
  Sender: FDA-Public Use
  Company Number: US-BAUSCH-2010BL001544

PATIENT
  Age: 94 Year
  Sex: Female

DRUGS (5)
  1. ERYTHROCIN 1% [Suspect]
     Indication: EYE IRRITATION
     Route: 047
     Dates: start: 20091101, end: 20091101
  2. COZAAR [Concomitant]
     Indication: HYPERTENSION
  3. ASPIRIN [Concomitant]
  4. PEPCID [Concomitant]
     Indication: GASTRIC ULCER HAEMORRHAGE
  5. ICAPS [Concomitant]

REACTIONS (2)
  - BLINDNESS UNILATERAL [None]
  - VISION BLURRED [None]
